FAERS Safety Report 6883953-1 (Version None)
Quarter: 2010Q3

REPORT INFORMATION
  Report Type: 
  Country: None (occurrence: None)
  Receive Date: 20100729
  Receipt Date: 20100713
  Transmission Date: 20110219
  Serious: No
  Sender: FDA-Public Use
  Company Number: US-B.I. PHARMACEUTICALS,INC./RIDGEFIELD-2010-BP-08051BP

PATIENT
  Sex: Female

DRUGS (6)
  1. COMBIVENT [Suspect]
     Dates: end: 20100101
  2. SINGULAIR [Concomitant]
     Indication: CHRONIC OBSTRUCTIVE PULMONARY DISEASE
  3. ALBUTEROL [Concomitant]
     Indication: CHRONIC OBSTRUCTIVE PULMONARY DISEASE
  4. FLOVENT [Concomitant]
     Indication: CHRONIC OBSTRUCTIVE PULMONARY DISEASE
  5. FLONASE [Concomitant]
     Indication: HYPERSENSITIVITY
  6. SOLU-MEDROL INJECT [Concomitant]

REACTIONS (2)
  - ARTHROPOD STING [None]
  - WHEEZING [None]
